FAERS Safety Report 6355344 (Version 6)
Quarter: 2013Q2

REPORT INFORMATION
  Report Type: Spontaneous
  Country: JP (occurrence: JP)
  Receive Date: 20070712
  Receipt Date: 20130516
  Transmission Date: 20140414
  Serious: Yes (Other)
  Sender: FDA-Public Use
  Company Number: PHBS2007JP11466

PATIENT
  Age: 59 Year
  Sex: Male

DRUGS (8)
  1. SIMULECT [Suspect]
     Dosage: UNK
  2. CICLOSPORIN [Suspect]
     Indication: RENAL TRANSPLANT
     Dosage: UNK
     Dates: start: 20061018
  3. MYCOPHENOLATE MOFETIL [Suspect]
     Dosage: UNK
  4. METHYLPREDNISOLONE [Suspect]
     Dosage: UNK
  5. SULFAMETHOXAZOLE [Suspect]
     Dosage: UNK
  6. TRIMETHOPRIM [Suspect]
     Dosage: UNK
  7. AMIKACIN [Concomitant]
     Dosage: UNK
  8. CILASTATIN W/IMIPENEM [Concomitant]
     Dosage: UNK

REACTIONS (6)
  - Renal tubular disorder [Recovered/Resolved]
  - Renal impairment [Recovered/Resolved]
  - Blood creatinine increased [Recovered/Resolved]
  - Nocardiosis [Recovered/Resolved]
  - Pulmonary mass [Recovered/Resolved]
  - Kidney transplant rejection [Recovered/Resolved]
